FAERS Safety Report 15333820 (Version 1)
Quarter: 2018Q3

REPORT INFORMATION
  Report Type: Spontaneous
  Country: US (occurrence: US)
  Receive Date: 20180825
  Receipt Date: 20180825
  Transmission Date: 20181010
  Serious: No
  Sender: FDA-Public Use
  Company Number: None

PATIENT
  Sex: Female
  Weight: 73.8 kg

DRUGS (2)
  1. LEVOXOTHRINE [Concomitant]
  2. LEVOXITHINE (LEVOTHYROXINE) [Suspect]
     Active Substance: LEVOTHYROXINE
     Indication: GOITRE
     Dosage: ?          QUANTITY:1 TABLET(S);?
     Route: 048

REACTIONS (5)
  - Madarosis [None]
  - Swelling face [None]
  - Deafness unilateral [None]
  - Peripheral swelling [None]
  - Exophthalmos [None]
